FAERS Safety Report 6890354-9 (Version None)
Quarter: 2010Q3

REPORT INFORMATION
  Report Type: 
  Country: None (occurrence: None)
  Receive Date: 20100730
  Receipt Date: 20081008
  Transmission Date: 20110219
  Serious: No
  Sender: FDA-Public Use
  Company Number: US-PFIZER INC-2008084755

PATIENT
  Sex: Female
  Weight: 90.72 kg

DRUGS (2)
  1. LIPITOR [Suspect]
     Indication: BLOOD CHOLESTEROL INCREASED
  2. DYAZIDE [Concomitant]
     Indication: HYPERTENSION

REACTIONS (6)
  - DRUG DOSE OMISSION [None]
  - LIMB DISCOMFORT [None]
  - MIDDLE INSOMNIA [None]
  - MUSCULOSKELETAL DISCOMFORT [None]
  - MYALGIA [None]
  - OEDEMA PERIPHERAL [None]
